FAERS Safety Report 5744329-3 (Version None)
Quarter: 2008Q2

REPORT INFORMATION
  Report Type: 
  Country: None (occurrence: None)
  Receive Date: 20080516
  Receipt Date: 20080516
  Transmission Date: 20081010
  Serious: No
  Sender: FDA-Public Use
  Company Number: None

PATIENT
  Age: 38 Year
  Sex: Female
  Weight: 51.2565 kg

DRUGS (1)
  1. XYZAL [Suspect]
     Indication: RASH
     Dates: start: 20080327, end: 20080328

REACTIONS (1)
  - RESPIRATORY DISTRESS [None]
